FAERS Safety Report 18749539 (Version 3)
Quarter: 2021Q2

REPORT INFORMATION
  Report Type: Spontaneous
  Country: US (occurrence: US)
  Receive Date: 20210116
  Receipt Date: 20210527
  Transmission Date: 20210717
  Serious: Yes (Congenital Anomaly, Other)
  Sender: FDA-Public Use
  Company Number: NVSC2021US007738

PATIENT
  Sex: Female

DRUGS (1)
  1. ZOFRAN [Suspect]
     Active Substance: ONDANSETRON HYDROCHLORIDE
     Indication: FOETAL EXPOSURE DURING PREGNANCY
     Dosage: MOTHER^S DOSE: 4 MG, UNK
     Route: 064

REACTIONS (14)
  - Congenital anomaly [Unknown]
  - Congenital tongue anomaly [Unknown]
  - Cleft lip [Unknown]
  - Foetal exposure during pregnancy [Unknown]
  - Mouth cyst [Unknown]
  - Cleft palate [Unknown]
  - Ankyloglossia congenital [Unknown]
  - Malocclusion [Unknown]
  - Mastication disorder [Unknown]
  - Conductive deafness [Unknown]
  - Injury [Unknown]
  - Bruxism [Unknown]
  - Fissure of tongue, congenital [Unknown]
  - Dysphagia [Unknown]
